FAERS Safety Report 6772800-4 (Version None)
Quarter: 2010Q2

REPORT INFORMATION
  Report Type: 
  Country: None (occurrence: None)
  Receive Date: 20100616
  Receipt Date: 20100614
  Transmission Date: 20101027
  Serious: Yes (Other)
  Sender: FDA-Public Use
  Company Number: GXKR2010DE06439

PATIENT
  Age: 51 Year
  Sex: Male

DRUGS (3)
  1. EPIRUBICIN (NGX) [Suspect]
     Dosage: 2 CYCLES
     Route: 065
     Dates: start: 20100201, end: 20100301
  2. FLUOROURACIL [Concomitant]
     Route: 065
  3. OXALIPLATIN [Concomitant]
     Route: 065

REACTIONS (2)
  - CARDIOTOXICITY [None]
  - HEPATIC FAILURE [None]
